FAERS Safety Report 16656914 (Version 2)
Quarter: 2019Q3

REPORT INFORMATION
  Report Type: Report from Study
  Country: None (occurrence: US)
  Receive Date: 20190801
  Receipt Date: 20190826
  Transmission Date: 20191004
  Serious: Yes (Hospitalization, Other)
  Sender: FDA-Public Use
  Company Number: US-ABBVIE-19K-163-2679283-00

PATIENT
  Age: 67 Year
  Sex: Female
  Weight: 106.24 kg

DRUGS (15)
  1. SULFUR. [Suspect]
     Active Substance: SULFUR
     Indication: PRODUCT USED FOR UNKNOWN INDICATION
     Route: 065
  2. AMOXICILLIN. [Suspect]
     Active Substance: AMOXICILLIN
     Indication: URINARY TRACT INFECTION
     Route: 065
  3. LISINOPRIL. [Concomitant]
     Active Substance: LISINOPRIL
     Indication: HYPERTENSION
  4. OMEPRAZOLE. [Concomitant]
     Active Substance: OMEPRAZOLE
     Indication: GASTROOESOPHAGEAL REFLUX DISEASE
  5. RANITIDINE. [Concomitant]
     Active Substance: RANITIDINE
     Indication: GASTROOESOPHAGEAL REFLUX DISEASE
  6. HUMIRA [Suspect]
     Active Substance: ADALIMUMAB
     Indication: PSORIASIS
     Route: 058
     Dates: start: 2011
  7. GABAPENTIN. [Suspect]
     Active Substance: GABAPENTIN
     Indication: NEURALGIA
     Route: 048
     Dates: start: 20150821, end: 20150823
  8. LEUCOVORIN CALCIUM. [Concomitant]
     Active Substance: LEUCOVORIN CALCIUM
     Indication: BLOOD DISORDER
  9. SIMVASTATIN. [Concomitant]
     Active Substance: SIMVASTATIN
     Indication: BLOOD CHOLESTEROL INCREASED
  10. HUMIRA [Suspect]
     Active Substance: ADALIMUMAB
     Route: 058
     Dates: end: 2013
  11. CRANBERRY. [Concomitant]
     Active Substance: CRANBERRY
     Indication: URINARY TRACT INFECTION
  12. HUMIRA [Suspect]
     Active Substance: ADALIMUMAB
     Indication: RHEUMATOID ARTHRITIS
     Route: 058
     Dates: start: 2011, end: 2011
  13. HUMIRA [Suspect]
     Active Substance: ADALIMUMAB
     Route: 058
     Dates: start: 2013
  14. FOLIC ACID. [Concomitant]
     Active Substance: FOLIC ACID
     Indication: VITAMIN SUPPLEMENTATION
  15. METHOTREXATE. [Concomitant]
     Active Substance: METHOTREXATE
     Indication: RHEUMATOID ARTHRITIS

REACTIONS (46)
  - Back pain [Recovered/Resolved]
  - Burning sensation [Unknown]
  - Blood triglycerides increased [Not Recovered/Not Resolved]
  - Ectropion [Recovered/Resolved]
  - Cardiac murmur [Not Recovered/Not Resolved]
  - Adhesion [Unknown]
  - Arthralgia [Not Recovered/Not Resolved]
  - Ulcer [Recovered/Resolved]
  - Stomatitis [Recovered/Resolved]
  - Eyelid infection [Recovered/Resolved]
  - Contusion [Unknown]
  - Sciatica [Not Recovered/Not Resolved]
  - Myocarditis [Unknown]
  - Fatigue [Not Recovered/Not Resolved]
  - Drug hypersensitivity [Unknown]
  - Inflammation [Recovering/Resolving]
  - Neuropathy peripheral [Not Recovered/Not Resolved]
  - Cataract [Recovered/Resolved]
  - Muscular weakness [Unknown]
  - Urinary tract infection [Recovered/Resolved]
  - Hypoaesthesia [Recovered/Resolved]
  - Hypersomnia [Recovering/Resolving]
  - Fall [Recovered/Resolved]
  - Atrial fibrillation [Unknown]
  - Drug hypersensitivity [Unknown]
  - Pain [Not Recovered/Not Resolved]
  - Bronchitis chronic [Recovered/Resolved]
  - Urinary tract infection [Recovered/Resolved]
  - Chest pain [Recovering/Resolving]
  - Blood pressure decreased [Recovered/Resolved]
  - Bronchitis [Unknown]
  - Pneumonia [Unknown]
  - Blood cholesterol increased [Not Recovered/Not Resolved]
  - Pain [Not Recovered/Not Resolved]
  - Knee arthroplasty [Unknown]
  - Inflammation [Unknown]
  - Insomnia [Recovered/Resolved]
  - Headache [Recovering/Resolving]
  - Ear pain [Recovering/Resolving]
  - Hypertension [Recovering/Resolving]
  - Cardiac disorder [Not Recovered/Not Resolved]
  - Cardiac flutter [Unknown]
  - Migraine [Not Recovered/Not Resolved]
  - Palpitations [Unknown]
  - Limb discomfort [Not Recovered/Not Resolved]
  - Abdominal pain upper [Recovering/Resolving]

NARRATIVE: CASE EVENT DATE: 2013
